FAERS Safety Report 6732701-4 (Version None)
Quarter: 2010Q2

REPORT INFORMATION
  Report Type: 
  Country: None (occurrence: None)
  Receive Date: 20100519
  Receipt Date: 20100325
  Transmission Date: 20101027
  Serious: No
  Sender: FDA-Public Use
  Company Number: US-BRISTOL-MYERS SQUIBB COMPANY-15037922

PATIENT
  Sex: Female

DRUGS (1)
  1. BARACLUDE [Suspect]
     Dates: start: 20080101

REACTIONS (1)
  - FATIGUE [None]
